FAERS Safety Report 7638295-3 (Version None)
Quarter: 2011Q3

REPORT INFORMATION
  Report Type: 
  Country: None (occurrence: None)
  Receive Date: 20110727
  Receipt Date: 20110727
  Transmission Date: 20111222
  Serious: Yes (Life-Threatening)
  Sender: FDA-Public Use
  Company Number: None

PATIENT
  Age: 68 Year
  Sex: Female
  Weight: 48.987 kg

DRUGS (1)
  1. CALCITONIN SALMON [Suspect]
     Indication: OSTEOPOROSIS
     Dosage: 200 I.U
     Route: 045
     Dates: start: 20110722, end: 20110725

REACTIONS (6)
  - FLUSHING [None]
  - ARRHYTHMIA [None]
  - CONSTIPATION [None]
  - DYSPNOEA [None]
  - PRURITUS [None]
  - SINUS DISORDER [None]
